FAERS Safety Report 8844315 (Version 2)
Quarter: 2012Q4

REPORT INFORMATION
  Report Type: Report from Study
  Country: CA (occurrence: CA)
  Receive Date: 20121017
  Receipt Date: 20121203
  Transmission Date: 20130627
  Serious: Yes (Other)
  Sender: FDA-Public Use
  Company Number: CA-JNJFOC-20121005199

PATIENT
  Age: 62 Year
  Sex: Male
  Weight: 81 kg

DRUGS (13)
  1. REMICADE [Suspect]
     Indication: COLITIS ULCERATIVE
     Route: 042
     Dates: start: 20080403
  2. FAMOTIDINE [Concomitant]
     Route: 065
  3. HYDRAZIDE [Concomitant]
     Route: 065
  4. CRESTOR [Concomitant]
     Route: 065
  5. RAMIPRIL [Concomitant]
     Route: 065
  6. BISOPROLOL [Concomitant]
     Route: 065
  7. PRADAXA [Concomitant]
     Route: 065
  8. VITAMIN D [Concomitant]
     Route: 065
  9. OMEGA 3 [Concomitant]
     Route: 065
  10. VITAMIN B12 [Concomitant]
     Route: 065
  11. FOLIC ACID [Concomitant]
     Route: 065
  12. ZINC [Concomitant]
     Route: 065
  13. ANDROGEL [Concomitant]
     Route: 065

REACTIONS (2)
  - Small cell lung cancer [Not Recovered/Not Resolved]
  - Metastases to bone [Not Recovered/Not Resolved]
